FAERS Safety Report 23581759 (Version 2)
Quarter: 2024Q1

REPORT INFORMATION
  Report Type: Report from Study
  Country: US (occurrence: US)
  Receive Date: 20240229
  Receipt Date: 20240318
  Transmission Date: 20240410
  Serious: Yes (Hospitalization, Other)
  Sender: FDA-Public Use
  Company Number: US-PFIZER INC-PV202300114529

PATIENT
  Age: 67 Year
  Sex: Female

DRUGS (3)
  1. PALBOCICLIB [Suspect]
     Active Substance: PALBOCICLIB
     Indication: Breast cancer female
     Dosage: 100 MG
     Route: 048
     Dates: start: 2023
  2. PALBOCICLIB [Suspect]
     Active Substance: PALBOCICLIB
     Dosage: 100 MG, ONCE DAILY FOR 21 DAYS ON AND 7 OFF
     Route: 048
     Dates: start: 20230604
  3. FULVESTRANT [Concomitant]
     Active Substance: FULVESTRANT
     Dosage: 1 DF, MONTHLY

REACTIONS (7)
  - Haemorrhoidal haemorrhage [Unknown]
  - Thrombosis [Unknown]
  - Diarrhoea [Recovering/Resolving]
  - Pruritus [Not Recovered/Not Resolved]
  - Dry skin [Not Recovered/Not Resolved]
  - Full blood count abnormal [Unknown]
  - Full blood count decreased [Unknown]

NARRATIVE: CASE EVENT DATE: 20230601
